FAERS Safety Report 5900311-4 (Version None)
Quarter: 2008Q3

REPORT INFORMATION
  Report Type: 
  Country: None (occurrence: None)
  Receive Date: 20080926
  Receipt Date: 20080912
  Transmission Date: 20090109
  Serious: Yes (Hospitalization)
  Sender: FDA-Public Use
  Company Number: MX-ELI_LILLY_AND_COMPANY-MX200809003045

PATIENT
  Age: 21 Year
  Sex: Female
  Weight: 60 kg

DRUGS (3)
  1. HUMALOG [Suspect]
     Dosage: 58 IU, UNK
     Route: 058
  2. HUMALOG [Suspect]
     Dosage: 26 IU, EACH EVENING
     Route: 058
  3. LANTUS [Concomitant]
     Dosage: 8 IU, DAILY (1/D)
     Route: 065

REACTIONS (2)
  - BLOOD GLUCOSE ABNORMAL [None]
  - HYPERGLYCAEMIA [None]
